FAERS Safety Report 20901975 (Version 7)
Quarter: 2022Q4

REPORT INFORMATION
  Report Type: Report from Study
  Country: CZ (occurrence: CZ)
  Receive Date: 20220601
  Receipt Date: 20221018
  Transmission Date: 20230113
  Serious: Yes (Death, Hospitalization)
  Sender: FDA-Public Use
  Company Number: CZ-PFIZER INC-202200758866

PATIENT
  Age: 78 Year
  Sex: Female
  Weight: 55 kg

DRUGS (35)
  1. RITUXIMAB [Suspect]
     Active Substance: RITUXIMAB
     Indication: Diffuse large B-cell lymphoma stage IV
     Dosage: REGIMEN #1, 375 MG/M2, 1Q3W
     Route: 042
     Dates: start: 20210420, end: 20210816
  2. METHYLPREDNISOLONE SODIUM SUCCINATE [Suspect]
     Active Substance: METHYLPREDNISOLONE SODIUM SUCCINATE
     Indication: Diffuse large B-cell lymphoma stage IV
     Dosage: REGIMEN #1, 80 MG, QD
     Route: 042
     Dates: start: 20210420, end: 20210420
  3. METHYLPREDNISOLONE SODIUM SUCCINATE [Suspect]
     Active Substance: METHYLPREDNISOLONE SODIUM SUCCINATE
     Dosage: REGIMEN #2, 80 MG, QD
     Route: 042
     Dates: start: 20210510, end: 20210510
  4. METHYLPREDNISOLONE SODIUM SUCCINATE [Suspect]
     Active Substance: METHYLPREDNISOLONE SODIUM SUCCINATE
     Dosage: REGIMEN #3, 80 MG, QD
     Route: 042
     Dates: start: 20210614, end: 20210614
  5. METHYLPREDNISOLONE SODIUM SUCCINATE [Suspect]
     Active Substance: METHYLPREDNISOLONE SODIUM SUCCINATE
     Dosage: REGIMEN #4, 80 MG, QD
     Route: 042
     Dates: start: 20210726, end: 20210726
  6. METHYLPREDNISOLONE SODIUM SUCCINATE [Suspect]
     Active Substance: METHYLPREDNISOLONE SODIUM SUCCINATE
     Dosage: REGIMEN #5, 80 MG, QD
     Route: 042
     Dates: start: 20210816, end: 20210816
  7. METHYLPREDNISOLONE [Suspect]
     Active Substance: METHYLPREDNISOLONE
     Indication: Diffuse large B-cell lymphoma stage IV
     Dosage: UNK
  8. EPCORITAMAB [Suspect]
     Active Substance: EPCORITAMAB
     Indication: Diffuse large B-cell lymphoma stage IV
     Dosage: REGIMEN #1, PRIMING DOSE
     Route: 058
     Dates: start: 20210420, end: 20210420
  9. EPCORITAMAB [Suspect]
     Active Substance: EPCORITAMAB
     Dosage: REGIMEN #2, INTERMEDIATE DOSE
     Route: 058
     Dates: start: 20210426, end: 20210426
  10. EPCORITAMAB [Suspect]
     Active Substance: EPCORITAMAB
     Dosage: REGIMEN #3, FULL DOSE
     Route: 058
     Dates: start: 20210503, end: 20210719
  11. EPCORITAMAB [Suspect]
     Active Substance: EPCORITAMAB
     Dosage: REGIMEN #4, FULL DOSE, 48 MG 1Q3W
     Route: 058
     Dates: start: 20210726, end: 20210816
  12. EPCORITAMAB [Suspect]
     Active Substance: EPCORITAMAB
     Dosage: REGIMEN #5, FULL DOSE, 48 MG 1Q4W
     Route: 058
     Dates: start: 20210913, end: 20220228
  13. CYCLOPHOSPHAMIDE [Suspect]
     Active Substance: CYCLOPHOSPHAMIDE
     Indication: Diffuse large B-cell lymphoma stage IV
     Dosage: REGIMEN #1
     Route: 042
     Dates: start: 20210420, end: 20210816
  14. DOXORUBICIN HYDROCHLORIDE [Suspect]
     Active Substance: DOXORUBICIN HYDROCHLORIDE
     Indication: Diffuse large B-cell lymphoma stage IV
     Dosage: REGIMEN #1
     Route: 042
     Dates: start: 20210420, end: 20210816
  15. VINCRISTINE SULFATE [Suspect]
     Active Substance: VINCRISTINE SULFATE
     Indication: Diffuse large B-cell lymphoma stage IV
     Dosage: REGIMEN #1
     Route: 042
     Dates: start: 20210420, end: 20210816
  16. PREDNISONE [Suspect]
     Active Substance: PREDNISONE
     Indication: Diffuse large B-cell lymphoma stage IV
     Dosage: REGIMEN #1
     Route: 048
     Dates: start: 20210421, end: 20210424
  17. PREDNISONE [Suspect]
     Active Substance: PREDNISONE
     Dosage: REGIMEN #2
     Route: 048
     Dates: start: 20210511, end: 20210514
  18. PREDNISONE [Suspect]
     Active Substance: PREDNISONE
     Dosage: REGIMEN #3
     Route: 048
     Dates: start: 20210615, end: 20210618
  19. PREDNISONE [Suspect]
     Active Substance: PREDNISONE
     Dosage: REGIMEN #4
     Route: 048
     Dates: start: 20210727, end: 20210730
  20. PREDNISONE [Suspect]
     Active Substance: PREDNISONE
     Dosage: REGIMEN #5
     Route: 048
     Dates: start: 20210817, end: 20210820
  21. BISULEPIN [Concomitant]
     Active Substance: BISULEPIN
     Indication: Premedication
     Dosage: 2 MG
     Route: 048
     Dates: start: 20220228, end: 20220228
  22. ACETAMINOPHEN [Concomitant]
     Active Substance: ACETAMINOPHEN
     Indication: Premedication
     Dosage: 1000 MG
     Route: 048
     Dates: start: 20220228, end: 20220228
  23. PREDNISONE [Concomitant]
     Active Substance: PREDNISONE
     Indication: Prophylaxis
     Dosage: 100 MG
     Route: 048
     Dates: start: 20210427, end: 20210429
  24. PREDNISONE [Concomitant]
     Active Substance: PREDNISONE
     Dosage: 100 MG
     Route: 048
     Dates: start: 20210503, end: 20210503
  25. PREDNISONE [Concomitant]
     Active Substance: PREDNISONE
     Dosage: 100 MG
     Route: 048
     Dates: start: 20220228, end: 20220228
  26. AMLODIPINE BESYLATE [Concomitant]
     Active Substance: AMLODIPINE BESYLATE
     Dosage: UNK
     Dates: start: 202006
  27. GRANISETRON HYDROCHLORIDE [Concomitant]
     Active Substance: GRANISETRON HYDROCHLORIDE
     Dosage: UNK
     Dates: start: 20210420
  28. LANSOPRAZOLE [Concomitant]
     Active Substance: LANSOPRAZOLE
     Dosage: UNK
     Dates: start: 2020
  29. ZALDIAR [Concomitant]
     Active Substance: ACETAMINOPHEN\TRAMADOL HYDROCHLORIDE
     Dosage: UNK
     Dates: start: 2018
  30. ALPRAZOLAM [Concomitant]
     Active Substance: ALPRAZOLAM
     Dosage: UNK
     Dates: start: 20210414
  31. VALACYCLOVIR HYDROCHLORIDE [Concomitant]
     Active Substance: VALACYCLOVIR HYDROCHLORIDE
     Dosage: UNK
     Dates: start: 20210414
  32. ALLOPURINOL [Concomitant]
     Active Substance: ALLOPURINOL
     Dosage: UNK
     Dates: start: 20210414
  33. SULFAMETHOXAZOLE\TRIMETHOPRIM [Concomitant]
     Active Substance: SULFAMETHOXAZOLE\TRIMETHOPRIM
     Dosage: UNK
     Dates: start: 20210414
  34. NOVALGIN (METAMIZOLE SODIUM) [Concomitant]
     Active Substance: METAMIZOLE SODIUM
     Dosage: UNK
     Dates: start: 20210414
  35. POTASSIUM CHLORIDE [Concomitant]
     Active Substance: POTASSIUM CHLORIDE
     Dosage: UNK
     Dates: start: 20220413

REACTIONS (2)
  - COVID-19 pneumonia [Fatal]
  - COVID-19 pneumonia [Not Recovered/Not Resolved]

NARRATIVE: CASE EVENT DATE: 20220311
